FAERS Safety Report 9384837 (Version 1)
Quarter: 2013Q3

REPORT INFORMATION
  Report Type: Report from Study
  Country: US (occurrence: US)
  Receive Date: 20130705
  Receipt Date: 20130705
  Transmission Date: 20140515
  Serious: Yes (Other)
  Sender: FDA-Public Use
  Company Number: US-PFIZER INC-2013196725

PATIENT
  Age: 64 Year
  Sex: Female

DRUGS (5)
  1. ALPRAZOLAM [Suspect]
     Dosage: UNK
  2. KETAMINE [Interacting]
     Indication: ANAESTHESIA
     Dosage: 0.5 MG/KG, UNK
  3. FLUVOXAMINE [Interacting]
     Dosage: UNK
  4. RILUZOLE [Interacting]
     Dosage: UNK
  5. N-ACETYLCYSTEINE [Interacting]
     Dosage: UNK

REACTIONS (6)
  - Drug interaction [Recovered/Resolved]
  - Suicidal ideation [Recovered/Resolved]
  - Depersonalisation [Recovered/Resolved]
  - Anxiety [Recovered/Resolved]
  - Dysphoria [Recovered/Resolved]
  - Depressive symptom [Recovered/Resolved]
